FAERS Safety Report 8032526-6 (Version None)
Quarter: 2011Q4

REPORT INFORMATION
  Report Type: 
  Country: None (occurrence: None)
  Receive Date: 20111202
  Receipt Date: 20101006
  Transmission Date: 20120403
  Serious: Yes (Hospitalization)
  Sender: FDA-Public Use
  Company Number: 2010SP053378

PATIENT
  Age: 22 Year
  Sex: Female
  Weight: 56.6996 kg

DRUGS (2)
  1. MIDODRINE HYDROCHLORIDE [Concomitant]
     Dates: start: 20070801, end: 20090201
  2. NUVARING [Suspect]
     Indication: CONTRACEPTION
     Dates: start: 20070801, end: 20090201

REACTIONS (4)
  - GASTROINTESTINAL DISORDER [None]
  - DEEP VEIN THROMBOSIS [None]
  - DEHYDRATION [None]
  - DEPRESSION [None]
